FAERS Safety Report 11226765 (Version 1)
Quarter: 2015Q2

REPORT INFORMATION
  Report Type: Spontaneous
  Country: US (occurrence: US)
  Receive Date: 20150630
  Receipt Date: 20150630
  Transmission Date: 20150821
  Serious: No
  Sender: FDA-Public Use
  Company Number: US-SA-2015SA049459

PATIENT
  Sex: Female

DRUGS (8)
  1. HYDROCHLOROTHIAZIDE. [Concomitant]
     Active Substance: HYDROCHLOROTHIAZIDE
  2. NEURONTIN [Concomitant]
     Active Substance: GABAPENTIN
  3. TRAMADOL [Concomitant]
     Active Substance: TRAMADOL
  4. VITAMIN D [Concomitant]
     Active Substance: CHOLECALCIFEROL
  5. BACLOFEN. [Concomitant]
     Active Substance: BACLOFEN
  6. VALSARTAN. [Concomitant]
     Active Substance: VALSARTAN
  7. FISH OIL [Concomitant]
     Active Substance: FISH OIL
  8. AUBAGIO [Suspect]
     Active Substance: TERIFLUNOMIDE
     Indication: MULTIPLE SCLEROSIS
     Route: 048
     Dates: start: 20150223

REACTIONS (6)
  - Rash [Unknown]
  - Pain in extremity [Unknown]
  - Arthralgia [Unknown]
  - Faeces pale [Unknown]
  - Musculoskeletal stiffness [Unknown]
  - Hepatic enzyme increased [Unknown]
